FAERS Safety Report 21312204 (Version 1)
Quarter: 2022Q3

REPORT INFORMATION
  Report Type: Spontaneous
  Country: US (occurrence: None)
  Receive Date: 20220909
  Receipt Date: 20220909
  Transmission Date: 20221026
  Serious: No
  Sender: FDA-Public Use
  Company Number: US-ARIS GLOBAL-202205-0777

PATIENT
  Sex: Female
  Weight: 70.824 kg

DRUGS (13)
  1. OXERVATE [Suspect]
     Active Substance: CENEGERMIN-BKBJ
     Indication: Neurotrophic keratopathy
     Route: 047
     Dates: start: 20220324
  2. BLINK TEARS [Concomitant]
     Active Substance: POLYETHYLENE GLYCOL 400
  3. TYLENOL [Concomitant]
     Active Substance: ACETAMINOPHEN
  4. PANTOPRAZOLE SODIUM [Concomitant]
     Active Substance: PANTOPRAZOLE SODIUM
  5. VITAMIN D2 [Concomitant]
     Active Substance: ERGOCALCIFEROL
  6. FOSAMAX [Concomitant]
     Active Substance: ALENDRONATE SODIUM
  7. LISINOPRIL [Concomitant]
     Active Substance: LISINOPRIL
  8. PREDNISONE [Concomitant]
     Active Substance: PREDNISONE
  9. PLAQUENIL [Concomitant]
     Active Substance: HYDROXYCHLOROQUINE SULFATE
  10. HERBALS\TURMERIC [Concomitant]
     Active Substance: HERBALS\TURMERIC
     Dosage: 450MG-50MG
  11. PEPPERMINT OIL [Concomitant]
     Active Substance: PEPPERMINT OIL
  12. PROBIOTICS NOS [Concomitant]
     Active Substance: PROBIOTICS NOS
     Dosage: 250MM CELL
  13. HYDROXYCHLOROQUINE SULFATE [Concomitant]
     Active Substance: HYDROXYCHLOROQUINE SULFATE

REACTIONS (1)
  - Lacrimation increased [Unknown]
